FAERS Safety Report 6878682-4 (Version None)
Quarter: 2010Q3

REPORT INFORMATION
  Report Type: 
  Country: None (occurrence: None)
  Receive Date: 20100728
  Receipt Date: 20100722
  Transmission Date: 20110219
  Serious: Yes (Death)
  Sender: FDA-Public Use
  Company Number: B0662569A

PATIENT
  Sex: Female

DRUGS (4)
  1. ARIXTRA [Suspect]
     Indication: PRODUCT USED FOR UNKNOWN INDICATION
     Dosage: 1.5MG PER DAY
     Route: 058
     Dates: start: 20100519, end: 20100602
  2. PAZUCROSS [Concomitant]
     Indication: INFLAMMATION
     Dosage: 1000MG PER DAY
     Route: 042
     Dates: end: 20100524
  3. ZOSYN [Concomitant]
     Indication: INFLAMMATION
     Dosage: 18G PER DAY
     Route: 042
     Dates: start: 20100525
  4. ALBUMIN (HUMAN) [Concomitant]

REACTIONS (3)
  - DISSEMINATED INTRAVASCULAR COAGULATION [None]
  - INTRA-ABDOMINAL HAEMORRHAGE [None]
  - MULTI-ORGAN FAILURE [None]
